FAERS Safety Report 6676534-6 (Version None)
Quarter: 2010Q1

REPORT INFORMATION
  Report Type: 
  Country: None (occurrence: None)
  Receive Date: 20100331
  Receipt Date: 20100423
  Transmission Date: 20100710
  Serious: Yes (Other)
  Sender: FDA-Public Use
  Company Number: 2008101493

PATIENT
  Age: 61 Year
  Sex: Male
  Weight: 86 kg

DRUGS (3)
  1. SUTENT [Suspect]
     Indication: RENAL CELL CARCINOMA
     Dosage: 50 MG 1X / DAY, ORAL
     Route: 048
     Dates: start: 20070613
  2. PROSCAR [Concomitant]
  3. VITAMINS [Concomitant]

REACTIONS (4)
  - DEEP VEIN THROMBOSIS [None]
  - ERYTHEMA [None]
  - PAIN IN EXTREMITY [None]
  - RASH GENERALISED [None]
